FAERS Safety Report 17716659 (Version 3)
Quarter: 2020Q2

REPORT INFORMATION
  Report Type: Spontaneous
  Country: TW (occurrence: TW)
  Receive Date: 20200428
  Receipt Date: 20200617
  Transmission Date: 20200714
  Serious: Yes (Hospitalization, Other)
  Sender: FDA-Public Use
  Company Number: TW-AMGEN-TWNSP2020069020

PATIENT
  Age: 84 Year
  Sex: Female

DRUGS (3)
  1. ENBREL [Suspect]
     Active Substance: ETANERCEPT
     Indication: RHEUMATOID ARTHRITIS
     Dosage: 25 MG, BIW
     Route: 058
     Dates: start: 201209
  2. PREDNISOLONE. [Concomitant]
     Active Substance: PREDNISOLONE
     Dosage: 10 MG, 1X/DAY(QD)
     Route: 048
  3. ARCOXIA [Concomitant]
     Active Substance: ETORICOXIB
     Dosage: 60 MG, 1X/DAY(QD)
     Route: 048

REACTIONS (7)
  - Vascular occlusion [Unknown]
  - Vascular occlusion [Recovered/Resolved]
  - Osteonecrosis [Unknown]
  - Peripheral vascular disorder [Unknown]
  - Peripheral vascular disorder [Recovered/Resolved]
  - Gait inability [Recovering/Resolving]
  - Postoperative wound infection [Not Recovered/Not Resolved]

NARRATIVE: CASE EVENT DATE: 202005
